FAERS Safety Report 19780541 (Version 2)
Quarter: 2021Q3

REPORT INFORMATION
  Report Type: Report from Study
  Country: CA (occurrence: CA)
  Receive Date: 20210902
  Receipt Date: 20210907
  Transmission Date: 20211014
  Serious: Yes (Other)
  Sender: FDA-Public Use
  Company Number: CA-OTSUKA-2021_027682

PATIENT
  Age: 74 Year
  Sex: Female

DRUGS (1)
  1. CEDAZURIDINE AND DECITABINE [Suspect]
     Active Substance: CEDAZURIDINE\DECITABINE
     Indication: MYELODYSPLASTIC SYNDROME
     Dosage: (35 MG OF DECITABINE AND 100 MG OF CEDAZURIDINE)
     Route: 065
     Dates: start: 20210420

REACTIONS (8)
  - Fatigue [Unknown]
  - Dizziness [Unknown]
  - Nausea [Unknown]
  - Therapy interrupted [Unknown]
  - Packed red blood cell transfusion [Unknown]
  - Dyspnoea [Unknown]
  - Blood product transfusion dependent [Unknown]
  - Muscle spasms [Unknown]

NARRATIVE: CASE EVENT DATE: 202106
